FAERS Safety Report 25780143 (Version 1)
Quarter: 2025Q3

REPORT INFORMATION
  Report Type: Report from Study
  Country: AR (occurrence: AR)
  Receive Date: 20250909
  Receipt Date: 20250909
  Transmission Date: 20251021
  Serious: Yes (Hospitalization)
  Sender: ABBVIE
  Company Number: AR-ABBVIE-6450304

PATIENT
  Age: 57 Year
  Sex: Female

DRUGS (1)
  1. RINVOQ [Suspect]
     Active Substance: UPADACITINIB
     Indication: Psoriatic arthropathy
     Dosage: RINVOQ 15MG X 30 TABLETS
     Route: 048
     Dates: start: 20250101

REACTIONS (5)
  - Bacteraemia [Recovered/Resolved]
  - Urinary tract infection staphylococcal [Recovered/Resolved]
  - Bacteriuria [Recovered/Resolved]
  - Drug ineffective [Unknown]
  - Pathogen resistance [Unknown]

NARRATIVE: CASE EVENT DATE: 20250101
